FAERS Safety Report 8785278 (Version 2)
Quarter: 2014Q3

REPORT INFORMATION
  Report Type: Spontaneous
  Country: US (occurrence: US)
  Receive Date: 20120914
  Receipt Date: 20140703
  Transmission Date: 20150326
  Serious: Yes (Hospitalization, Other)
  Sender: FDA-Public Use
  Company Number: US-ASTRAZENECA-2012SE71053

PATIENT
  Age: 65 Year
  Sex: Female
  Weight: 75.3 kg

DRUGS (10)
  1. NEXIUM [Suspect]
     Active Substance: ESOMEPRAZOLE MAGNESIUM
     Indication: EROSIVE OESOPHAGITIS
     Route: 048
  2. NEXIUM [Suspect]
     Active Substance: ESOMEPRAZOLE MAGNESIUM
     Indication: EROSIVE OESOPHAGITIS
     Route: 048
  3. PRILOSEC [Suspect]
     Active Substance: OMEPRAZOLE MAGNESIUM
     Indication: DUODENAL ULCER
     Route: 048
  4. PRILOSEC [Suspect]
     Active Substance: OMEPRAZOLE MAGNESIUM
     Indication: GASTROOESOPHAGEAL REFLUX DISEASE
     Route: 048
  5. MAGNESIUM [Concomitant]
     Active Substance: MAGNESIUM
     Indication: BLOOD CHOLESTEROL ABNORMAL
     Route: 048
  6. ANTICHOLINERGIC [Concomitant]
     Indication: IRRITABLE BOWEL SYNDROME
     Dosage: PRN
  7. NEXIUM [Suspect]
     Active Substance: ESOMEPRAZOLE MAGNESIUM
     Indication: EROSIVE OESOPHAGITIS
     Route: 048
     Dates: start: 20120905
  8. NEXIUM [Suspect]
     Active Substance: ESOMEPRAZOLE MAGNESIUM
     Indication: EROSIVE OESOPHAGITIS
     Route: 048
  9. PREVACID [Suspect]
     Active Substance: LANSOPRAZOLE
  10. ASPIRIN. [Concomitant]
     Active Substance: ASPIRIN

REACTIONS (19)
  - Asthma [Unknown]
  - Throat irritation [Recovered/Resolved]
  - Tongue ulceration [Unknown]
  - Drug dose omission [Unknown]
  - Oesophageal pain [Recovered/Resolved]
  - Melaena [Recovered/Resolved]
  - Gastrointestinal pain [Unknown]
  - Cough [Unknown]
  - Gastrooesophageal reflux disease [Unknown]
  - Headache [Recovered/Resolved]
  - Aphagia [Unknown]
  - Gastric ulcer haemorrhage [Unknown]
  - Malaise [Unknown]
  - Oesophageal spasm [Unknown]
  - Nausea [Unknown]
  - Dehydration [Unknown]
  - Blood cholesterol increased [Unknown]
  - Diarrhoea [Unknown]
  - Intentional product misuse [Unknown]

NARRATIVE: CASE EVENT DATE: 20120831
